FAERS Safety Report 14804483 (Version 2)
Quarter: 2018Q2

REPORT INFORMATION
  Report Type: Spontaneous
  Country: FR (occurrence: FR)
  Receive Date: 20180425
  Receipt Date: 20180507
  Transmission Date: 20180711
  Serious: Yes (Other)
  Sender: FDA-Public Use
  Company Number: FR-RARE DISEASE THERAPEUTICS, INC.-2046437

PATIENT
  Age: 13 Year
  Sex: Female

DRUGS (20)
  1. METHOTREXATE. [Suspect]
     Active Substance: METHOTREXATE
     Route: 037
     Dates: start: 20170602, end: 20170629
  2. ETOPOSIDE. [Suspect]
     Active Substance: ETOPOSIDE
     Route: 042
     Dates: start: 20170319, end: 20170321
  3. DAUNORUBICIN [Suspect]
     Active Substance: DAUNORUBICIN
     Route: 042
     Dates: start: 20161130
  4. PREDNISONE. [Suspect]
     Active Substance: PREDNISONE
     Route: 048
     Dates: start: 20161129, end: 20161228
  5. HYDROCORTANCYL [Suspect]
     Active Substance: PREDNISONE
     Route: 037
     Dates: start: 20170602, end: 20170602
  6. METHOTREXATE. [Suspect]
     Active Substance: METHOTREXATE
     Route: 042
     Dates: start: 20170417
  7. CYCLOPHOSPHAMIDE. [Suspect]
     Active Substance: CYCLOPHOSPHAMIDE
     Route: 042
     Dates: start: 20170627, end: 20170627
  8. VINCRISTINE [Suspect]
     Active Substance: VINCRISTINE
     Route: 042
     Dates: start: 20161130, end: 20170613
  9. PURIXAN [Suspect]
     Active Substance: MERCAPTOPURINE
     Indication: ACUTE LYMPHOCYTIC LEUKAEMIA
     Route: 048
     Dates: start: 20170113
  10. CYTARABINE. [Suspect]
     Active Substance: CYTARABINE
     Route: 037
     Dates: start: 20170602, end: 20170602
  11. THIOGUANINE [Suspect]
     Active Substance: THIOGUANINE
     Route: 048
     Dates: start: 20170627, end: 20170710
  12. CYCLOPHOSPHAMIDE. [Suspect]
     Active Substance: CYCLOPHOSPHAMIDE
     Route: 042
     Dates: start: 20170113
  13. THIOGUANINE [Suspect]
     Active Substance: THIOGUANINE
     Dates: start: 20170710, end: 20170714
  14. PEGASPARGASE [Suspect]
     Active Substance: PEGASPARGASE
     Route: 042
     Dates: start: 20170602, end: 20170715
  15. METHOTREXATE. [Suspect]
     Active Substance: METHOTREXATE
     Route: 037
     Dates: start: 20161129
  16. PREDNISOLONE. [Suspect]
     Active Substance: PREDNISOLONE
     Route: 037
     Dates: start: 20161202
  17. CYTARABINE. [Suspect]
     Active Substance: CYTARABINE
     Route: 042
     Dates: start: 20170629, end: 20170713
  18. CYTARABINE. [Suspect]
     Active Substance: CYTARABINE
     Route: 042
     Dates: start: 20170629, end: 20170713
  19. DEXAMETHASONE. [Suspect]
     Active Substance: DEXAMETHASONE
     Route: 048
     Dates: start: 20170530, end: 20170619
  20. DOXORUBICINE [Suspect]
     Active Substance: DOXORUBICIN
     Route: 042
     Dates: start: 20170530, end: 20170613

REACTIONS (1)
  - Hypertriglyceridaemia [Recovered/Resolved]

NARRATIVE: CASE EVENT DATE: 20170620
